FAERS Safety Report 12495819 (Version 1)
Quarter: 2016Q2

REPORT INFORMATION
  Report Type: Other
  Country: DE (occurrence: DE)
  Receive Date: 20160624
  Receipt Date: 20160624
  Transmission Date: 20160815
  Serious: Yes (Other)
  Sender: FDA-Public Use
  Company Number: DE-CIPLA LTD.-2016DE08124

PATIENT

DRUGS (2)
  1. PACLITAXEL. [Suspect]
     Active Substance: PACLITAXEL
     Indication: BREAST CANCER
     Dosage: 80 MG/M2/WEEK
     Route: 065
  2. EPIRUBICIN [Suspect]
     Active Substance: EPIRUBICIN
     Indication: BREAST CANCER
     Dosage: 20 MG/M2/?
     Route: 065

REACTIONS (6)
  - Staphylococcal infection [Unknown]
  - Papule [Unknown]
  - Exfoliative rash [Unknown]
  - Toxic shock syndrome [Unknown]
  - Pain [Unknown]
  - Stevens-Johnson syndrome [Unknown]
